FAERS Safety Report 4276908-7 (Version None)
Quarter: 2004Q1

REPORT INFORMATION
  Report Type: 
  Country: None (occurrence: None)
  Receive Date: 20040120
  Receipt Date: 20040105
  Transmission Date: 20041129
  Serious: Yes (Hospitalization)
  Sender: FDA-Public Use
  Company Number: 2003123666

PATIENT
  Sex: Female

DRUGS (2)
  1. VIAGRA [Suspect]
     Indication: PULMONARY HYPERTENSION
     Dosage: 50 MG, ORAL
     Route: 048
  2. ANTITHROMBOTIC AGENTS [Concomitant]

REACTIONS (1)
  - MENORRHAGIA [None]
